FAERS Safety Report 9419958 (Version 1)
Quarter: 2013Q3

REPORT INFORMATION
  Report Type: Spontaneous
  Country: US (occurrence: None)
  Receive Date: 20130723
  Receipt Date: 20130723
  Transmission Date: 20140515
  Serious: Yes (Life-Threatening, Disabling)
  Sender: FDA-Public Use
  Company Number: None

PATIENT
  Age: 53 Year
  Sex: Female
  Weight: 56.25 kg

DRUGS (2)
  1. TIAGABINE [Suspect]
     Indication: SYRINGOMYELIA
     Dosage: 1 TABLET TWICE DAILY PO
     Route: 048
     Dates: start: 20130519, end: 20130520
  2. TIAGABINE [Suspect]
     Indication: NEURALGIA
     Dosage: 1 TABLET TWICE DAILY PO
     Route: 048
     Dates: start: 20130519, end: 20130520

REACTIONS (14)
  - Swollen tongue [None]
  - Stomatitis [None]
  - Amnesia [None]
  - Dyspnoea [None]
  - Nausea [None]
  - Diarrhoea [None]
  - Irritability [None]
  - Insomnia [None]
  - Dizziness [None]
  - Headache [None]
  - Vulvovaginal pain [None]
  - Urine output decreased [None]
  - Weight decreased [None]
  - Paraesthesia [None]
